FAERS Safety Report 13155572 (Version 1)
Quarter: 2017Q1

REPORT INFORMATION
  Report Type: Spontaneous
  Country: FI (occurrence: FI)
  Receive Date: 20170126
  Receipt Date: 20170126
  Transmission Date: 20170428
  Serious: Yes (Disabling)
  Sender: FDA-Public Use
  Company Number: FI-TEVA-730498ISR

PATIENT
  Age: 35 Year
  Sex: Female

DRUGS (4)
  1. ATORVASTATIN RATIOPHARM [Suspect]
     Active Substance: ATORVASTATIN
     Route: 048
  2. FELODIPIN HEXAL [Suspect]
     Active Substance: FELODIPINE
     Route: 048
  3. LOSATRRIX [Suspect]
     Active Substance: LOSARTAN POTASSIUM
     Route: 048
  4. RAMIPRIL RATIOPHARM [Suspect]
     Active Substance: RAMIPRIL
     Route: 048

REACTIONS (2)
  - Psoriatic arthropathy [Not Recovered/Not Resolved]
  - Psoriasis [Not Recovered/Not Resolved]

NARRATIVE: CASE EVENT DATE: 2016
